FAERS Safety Report 19371574 (Version 1)
Quarter: 2021Q2

REPORT INFORMATION
  Report Type: Report from Study
  Country: CO (occurrence: CO)
  Receive Date: 20210603
  Receipt Date: 20210603
  Transmission Date: 20210717
  Serious: Yes (Other)
  Sender: FDA-Public Use
  Company Number: NVSC2021CO098900

PATIENT
  Sex: Female
  Weight: 58 kg

DRUGS (4)
  1. KISQALI [Suspect]
     Active Substance: RIBOCICLIB
     Indication: BREAST CANCER METASTATIC
     Dosage: 150 MG, QD (EVERY 24 HOURS), (13 MONTHS AGO)
     Route: 048
  2. KISQALI [Suspect]
     Active Substance: RIBOCICLIB
     Dosage: 100 MG, QD (EVERY 24 HOURS)
     Route: 048
     Dates: start: 20210501
  3. FULVESTRANT. [Suspect]
     Active Substance: FULVESTRANT
     Indication: BREAST CANCER
     Dosage: 250 MG, QMO
     Route: 030
  4. CALCIUM [Concomitant]
     Active Substance: CALCIUM
     Indication: BONE DECALCIFICATION
     Dosage: 4 MG, QMO
     Route: 042

REACTIONS (3)
  - Metastases to pelvis [Unknown]
  - Platelet count decreased [Unknown]
  - Off label use [Unknown]
